FAERS Safety Report 8769459 (Version 1)
Quarter: 2012Q4

REPORT INFORMATION
  Report Type: 
  Country: US (occurrence: US)
  Receive Date: 20120905
  Receipt Date: 20120905
  Transmission Date: 20130627
  Serious: No
  Sender: FDA-Public Use
  Company Number: US-TEVA-356908USA

PATIENT
  Age: 53 Year
  Sex: Male
  Weight: 81.72 kg

DRUGS (6)
  1. NUVIGIL [Suspect]
     Indication: SOMNOLENCE
     Dosage: 250 Milligram Daily; Q AM
     Route: 048
     Dates: start: 20120830
  2. LYRICA [Concomitant]
     Indication: NEURALGIA
     Dosage: 150 Milligram Daily;
     Route: 048
     Dates: start: 201208
  3. OPANA [Concomitant]
     Dosage: 10 Milligram Daily;
     Route: 048
  4. VICODIN [Concomitant]
     Dosage: 7.5/325 Q HS
     Route: 048
  5. FISH OIL [Concomitant]
  6. VITAMINS [Concomitant]

REACTIONS (3)
  - Palpitations [Not Recovered/Not Resolved]
  - Restlessness [Not Recovered/Not Resolved]
  - Off label use [Unknown]
